FAERS Safety Report 6716330-4 (Version None)
Quarter: 2010Q2

REPORT INFORMATION
  Report Type: 
  Country: None (occurrence: None)
  Receive Date: 20100507
  Receipt Date: 20100503
  Transmission Date: 20101027
  Serious: Yes (Other)
  Sender: FDA-Public Use
  Company Number: US-RB-027679-09

PATIENT
  Age: 47 Year
  Sex: Female

DRUGS (1)
  1. SUBOXONE [Suspect]
     Indication: DRUG USE FOR UNKNOWN INDICATION
     Dosage: UNKNOWN DOSING DETAILS
     Route: 065

REACTIONS (11)
  - CEREBROVASCULAR ACCIDENT [None]
  - CONSCIOUSNESS FLUCTUATING [None]
  - CONTUSION [None]
  - CONVULSION [None]
  - EUPHORIC MOOD [None]
  - FALL [None]
  - HEAD INJURY [None]
  - INTENTIONAL DRUG MISUSE [None]
  - NEUROPATHY PERIPHERAL [None]
  - OVERDOSE [None]
  - PAIN [None]
